FAERS Safety Report 5264550-0 (Version None)
Quarter: 2007Q1

REPORT INFORMATION
  Report Type: 
  Country: None (occurrence: None)
  Receive Date: 20061213
  Receipt Date: 20040708
  Transmission Date: 20070707
  Serious: Yes (Other)
  Sender: FDA-Public Use
  Company Number: 2004UW14078

PATIENT
  Age: 44 Year
  Sex: Male
  Weight: 79.3795 kg

DRUGS (6)
  1. IRESSA [Suspect]
     Indication: NON-SMALL CELL LUNG CANCER
     Dosage: 250 MG
  2. PAXIL [Concomitant]
  3. ZYRTEC [Concomitant]
  4. FLEXERIL [Concomitant]
  5. ZOMETA [Concomitant]
  6. CELEBREX [Concomitant]

REACTIONS (3)
  - AGEUSIA [None]
  - ANOREXIA [None]
  - WEIGHT DECREASED [None]
